FAERS Safety Report 10462047 (Version 1)
Quarter: 2014Q3

REPORT INFORMATION
  Report Type: Spontaneous
  Country: US (occurrence: US)
  Receive Date: 20140918
  Receipt Date: 20140918
  Transmission Date: 20150326
  Serious: Yes (Other)
  Sender: FDA-Public Use
  Company Number: US-JNJFOC-20140906642

PATIENT
  Age: 37 Year
  Sex: Female
  Weight: 51.71 kg

DRUGS (4)
  1. LISTERINE ANTISEPTIC MOUTHWASH [Suspect]
     Active Substance: EUCALYPTOL\MENTHOL\METHYL SALICYLATE\THYMOL
     Indication: DENTAL DISORDER PROPHYLAXIS
     Dosage: A SWIG, MAYBE 3 TABLESPOONS, ONCE-TWICE A DAY
     Route: 048
  2. FOLIC ACID. [Concomitant]
     Active Substance: FOLIC ACID
     Indication: PREGNANCY
     Route: 065
  3. CENTRUM (MINERALS NOS, VITAMINS NOS) [Concomitant]
     Indication: PREGNANCY
     Route: 065
  4. IRON [Concomitant]
     Active Substance: IRON
     Indication: PREGNANCY
     Route: 065

REACTIONS (5)
  - Product taste abnormal [Unknown]
  - Glossodynia [Recovered/Resolved]
  - Ageusia [Recovered/Resolved]
  - Abortion spontaneous [Not Recovered/Not Resolved]
  - Exposure during pregnancy [Unknown]
